FAERS Safety Report 8511501-9 (Version None)
Quarter: 2012Q3

REPORT INFORMATION
  Report Type: 
  Country: None (occurrence: None)
  Receive Date: 20120710
  Receipt Date: 20120710
  Transmission Date: 20120928
  Serious: Yes (Other)
  Sender: FDA-Public Use
  Company Number: None

PATIENT
  Age: 45 Year
  Sex: Male
  Weight: 86.1834 kg

DRUGS (5)
  1. CIPROFLOXACIN HCL [Concomitant]
  2. WELLBUTRIN [Concomitant]
  3. CIPROFLOXACIN HCL [Suspect]
     Indication: GASTROENTERITIS
     Dosage: 500MG BID PO
     Route: 048
     Dates: start: 20120629, end: 20120701
  4. PRISTIQ [Concomitant]
  5. IBUPROFEN [Concomitant]

REACTIONS (4)
  - PRESSURE OF SPEECH [None]
  - IRRITABILITY [None]
  - MANIA [None]
  - INSOMNIA [None]
